FAERS Safety Report 8214308-5 (Version None)
Quarter: 2012Q1

REPORT INFORMATION
  Report Type: 
  Country: None (occurrence: None)
  Receive Date: 20120316
  Receipt Date: 20120308
  Transmission Date: 20120608
  Serious: Yes (Hospitalization)
  Sender: FDA-Public Use
  Company Number: JP-GENZYME-FABR-1001587

PATIENT
  Sex: Male
  Weight: 67 kg

DRUGS (11)
  1. LOXOPROFEN SODIUM [Concomitant]
     Indication: FABRY'S DISEASE
     Dosage: UNK
  2. BENZALKONIUM CHLORIDE [Concomitant]
     Indication: FABRY'S DISEASE
     Dosage: UNK
     Route: 061
     Dates: start: 20100805
  3. LIDOCAINE HCL [Concomitant]
     Indication: FABRY'S DISEASE
     Dosage: UNK
  4. CLOSTRIDIUM BUTYRICUM [Concomitant]
     Indication: FABRY'S DISEASE
     Dosage: UNK
  5. SULFADIAZINE OINTMENT [Concomitant]
     Indication: FABRY'S DISEASE
     Dosage: UNK
  6. BUCLADESINE SODIUM [Concomitant]
     Indication: FABRY'S DISEASE
     Dosage: UNK
     Route: 061
     Dates: start: 20100805
  7. METOCLOPRAMIDE [Concomitant]
     Indication: FABRY'S DISEASE
     Dosage: UNK
  8. FABRAZYME [Suspect]
     Dosage: 70 MG, Q4W
     Route: 042
     Dates: start: 20091112, end: 20100623
  9. FABRAZYME [Suspect]
     Dosage: 1 MG/KG, Q2W
     Route: 042
     Dates: start: 20060808, end: 20091029
  10. TEPRENONE [Concomitant]
     Indication: FABRY'S DISEASE
     Dosage: UNK
  11. FABRAZYME [Suspect]
     Indication: FABRY'S DISEASE
     Dosage: 35 MG, Q2W
     Route: 042
     Dates: start: 20100707

REACTIONS (1)
  - SKIN ULCER [None]
